FAERS Safety Report 22069481 (Version 2)
Quarter: 2023Q2

REPORT INFORMATION
  Report Type: Spontaneous
  Country: US (occurrence: US)
  Receive Date: 20230307
  Receipt Date: 20230524
  Transmission Date: 20230721
  Serious: Yes (Life-Threatening, Hospitalization)
  Sender: FDA-Public Use
  Company Number: US-JNJFOC-20230263257

PATIENT
  Age: 25 Year
  Sex: Female

DRUGS (1)
  1. IMODIUM [Suspect]
     Active Substance: LOPERAMIDE HYDROCHLORIDE
     Indication: Product used for unknown indication
     Dosage: 100150 TABLETS
     Route: 048
     Dates: start: 2019

REACTIONS (14)
  - Syncope [Recovered/Resolved]
  - Cardiogenic shock [Recovered/Resolved]
  - Cardiac arrest [Recovered/Resolved]
  - Cardiac failure congestive [Recovered/Resolved]
  - Drug abuse [Unknown]
  - Ventricular tachycardia [Recovered/Resolved]
  - Electrocardiogram abnormal [Recovered/Resolved]
  - Nodal rhythm [Recovered/Resolved]
  - Bundle branch block right [Recovered/Resolved]
  - Atrioventricular block first degree [Recovered/Resolved]
  - Torsade de pointes [Recovered/Resolved]
  - Electrocardiogram QT prolonged [Recovered/Resolved]
  - Right ventricular dilatation [Recovered/Resolved]
  - Ventricular tachycardia [Recovered/Resolved]
